FAERS Safety Report 12913393 (Version 1)
Quarter: 2016Q4

REPORT INFORMATION
  Report Type: Spontaneous
  Country: GB (occurrence: GB)
  Receive Date: 20161104
  Receipt Date: 20161104
  Transmission Date: 20170207
  Serious: Yes (Other)
  Sender: FDA-Public Use
  Company Number: GB-MYLANLABS-2016M1046702

PATIENT

DRUGS (12)
  1. ATORVASTATIN [Concomitant]
     Active Substance: ATORVASTATIN
     Dosage: 1 DF, QD
     Dates: start: 20160610
  2. PRUCALOPRIDE [Concomitant]
     Active Substance: PRUCALOPRIDE
     Dosage: 1 DF, QD
     Dates: start: 20160315
  3. DOXYCYCLINE. [Suspect]
     Active Substance: DOXYCYCLINE
     Dosage: UNK
     Dates: start: 20161018
  4. CALCICHEW D3 [Concomitant]
     Active Substance: CALCIUM\CHOLECALCIFEROL
     Dosage: 1 DF, BID
     Dates: start: 20160122
  5. NAPROXEN. [Concomitant]
     Active Substance: NAPROXEN
     Dosage: 1 DF, BID (WITH OR JUST AFTER FOOD)
     Dates: start: 20160830, end: 20160913
  6. AMITRIPTYLINE HYDROCHLORIDE. [Concomitant]
     Active Substance: AMITRIPTYLINE HYDROCHLORIDE
     Dosage: 1 DF, QD (AT NIGHT)
     Dates: start: 20140623
  7. SCHERIPROCT                        /01814801/ [Concomitant]
     Dosage: 1 DF, QD (INSERT ONE DAILY)
     Dates: start: 20140623
  8. COLPERMIN [Concomitant]
     Dosage: 1 DF, TID
     Dates: start: 20140623
  9. ALENDRONIC ACID [Concomitant]
     Active Substance: ALENDRONIC ACID
     Dosage: 1 DF, QW (AS DIRECTED)
     Dates: start: 20160713
  10. EXEMESTANE. [Concomitant]
     Active Substance: EXEMESTANE
     Dosage: 1 DF, QD
     Dates: start: 20160315
  11. FLUOXETINE [Concomitant]
     Active Substance: FLUOXETINE HYDROCHLORIDE
     Dosage: 1 DF, QD
     Dates: start: 20160122
  12. OMEPRAZOLE. [Concomitant]
     Active Substance: OMEPRAZOLE
     Dosage: 1 DF, QD
     Dates: start: 20160303

REACTIONS (2)
  - Hypertension [Recovered/Resolved]
  - Headache [Recovered/Resolved]

NARRATIVE: CASE EVENT DATE: 20161018
